FAERS Safety Report 9435350 (Version 1)
Quarter: 2013Q3

REPORT INFORMATION
  Report Type: Spontaneous
  Country: CN (occurrence: CN)
  Receive Date: 20130801
  Receipt Date: 20130801
  Transmission Date: 20140515
  Serious: Yes (Other)
  Sender: FDA-Public Use
  Company Number: CN-BRISTOL-MYERS SQUIBB COMPANY-19138163

PATIENT
  Sex: Female

DRUGS (3)
  1. TAXOL [Suspect]
     Indication: OVARIAN CANCER
     Dosage: SECOND CYCLE OF TREATMENT WAS GIVEN ON:19JUL2013
     Route: 042
     Dates: start: 20130628, end: 2013
  2. PARAPLATIN [Suspect]
     Indication: OVARIAN CANCER
     Dosage: SECOND CYCLE OF TREATMENT WAS GIVEN ON:19JUL2013
     Route: 042
     Dates: start: 20130628, end: 2013
  3. BEVACIZUMAB [Suspect]
     Indication: OVARIAN CANCER
     Dosage: SECOND CYCLE OF TREATMENT WAS GIVEN ON:19JUL2013
     Route: 042
     Dates: start: 20130628, end: 2013

REACTIONS (2)
  - Syncope [Recovering/Resolving]
  - Hypoglycaemia [Recovering/Resolving]
